FAERS Safety Report 6963957-0 (Version None)
Quarter: 2010Q3

REPORT INFORMATION
  Report Type: 
  Country: None (occurrence: None)
  Receive Date: 20100902
  Receipt Date: 20100902
  Transmission Date: 20110219
  Serious: Yes (Other)
  Sender: FDA-Public Use
  Company Number: None

PATIENT
  Sex: Male
  Weight: 80.7403 kg

DRUGS (1)
  1. LEXAPRO [Suspect]
     Indication: ANXIETY
     Dosage: 10 MG QD PO
     Route: 048
     Dates: start: 20100730, end: 20100822

REACTIONS (7)
  - AGITATION [None]
  - ANORGASMIA [None]
  - ATRIAL FIBRILLATION [None]
  - ERECTILE DYSFUNCTION [None]
  - RESTLESSNESS [None]
  - TACHYCARDIA [None]
  - VENTRICULAR EXTRASYSTOLES [None]
